FAERS Safety Report 23091178 (Version 4)
Quarter: 2023Q4

REPORT INFORMATION
  Report Type: Spontaneous
  Country: CA (occurrence: CA)
  Receive Date: 20231020
  Receipt Date: 20231123
  Transmission Date: 20240109
  Serious: Yes (Death, Life-Threatening, Hospitalization, Disabling, Other)
  Sender: FDA-Public Use
  Company Number: CA-SANDOZ-SDZ2023CA043700

PATIENT
  Age: 43 Year
  Sex: Female
  Weight: 68 kg

DRUGS (165)
  1. ADALIMUMAB [Suspect]
     Active Substance: ADALIMUMAB\ISOPROPYL ALCOHOL
     Indication: Rheumatoid arthritis
     Dosage: 40 MG
     Route: 065
  2. ADALIMUMAB [Suspect]
     Active Substance: ADALIMUMAB\ISOPROPYL ALCOHOL
     Dosage: 40 MG
     Route: 065
  3. ALENDRONATE SODIUM [Suspect]
     Active Substance: ALENDRONATE SODIUM
     Route: 048
  4. ALENDRONATE SODIUM [Suspect]
     Active Substance: ALENDRONATE SODIUM
     Indication: Rheumatoid arthritis
     Route: 065
  5. ALENDRONIC ACID [Suspect]
     Active Substance: ALENDRONIC ACID
     Dosage: 10 MG
     Route: 065
  6. ALENDRONIC ACID [Suspect]
     Active Substance: ALENDRONIC ACID
     Dosage: 20 MG
     Route: 065
  7. ALENDRONIC ACID [Suspect]
     Active Substance: ALENDRONIC ACID
     Dosage: 20 MG
     Route: 065
  8. ALENDRONIC ACID [Suspect]
     Active Substance: ALENDRONIC ACID
     Dosage: UNK
     Route: 048
  9. ALENDRONIC ACID [Suspect]
     Active Substance: ALENDRONIC ACID
     Indication: Rheumatoid arthritis
     Dosage: UNK
     Route: 065
  10. ALENDRONIC ACID [Suspect]
     Active Substance: ALENDRONIC ACID
     Dosage: UNK
     Route: 065
  11. ALENDRONIC ACID [Suspect]
     Active Substance: ALENDRONIC ACID
     Dosage: UNK
     Route: 065
  12. ALENDRONIC ACID [Suspect]
     Active Substance: ALENDRONIC ACID
     Dosage: UNK
     Route: 065
  13. ACETAMINOPHEN [Suspect]
     Active Substance: ACETAMINOPHEN
     Indication: Product used for unknown indication
     Dosage: UNK
     Route: 065
  14. ACTEMRA [Suspect]
     Active Substance: TOCILIZUMAB
     Indication: Rheumatoid arthritis
     Dosage: UNK
     Route: 065
  15. ACTEMRA [Suspect]
     Active Substance: TOCILIZUMAB
     Dosage: UNK
     Route: 065
  16. PREDNISONE [Suspect]
     Active Substance: PREDNISONE
     Indication: Rheumatoid arthritis
     Dosage: UNK
     Route: 048
  17. APREMILAST [Suspect]
     Active Substance: APREMILAST
     Indication: Product used for unknown indication
     Dosage: 3 MG
     Route: 065
  18. ARAVA [Suspect]
     Active Substance: LEFLUNOMIDE
     Indication: Rheumatoid arthritis
     Dosage: 20 MG
     Route: 065
  19. ARAVA [Suspect]
     Active Substance: LEFLUNOMIDE
     Dosage: UNK
     Route: 065
  20. CETIRIZINE HYDROCHLORIDE [Suspect]
     Active Substance: CETIRIZINE HYDROCHLORIDE
     Dosage: 10 MG, QD
     Route: 065
  21. CETIRIZINE HYDROCHLORIDE [Suspect]
     Active Substance: CETIRIZINE HYDROCHLORIDE
     Dosage: 10 MG
     Route: 048
  22. CETIRIZINE HYDROCHLORIDE [Suspect]
     Active Substance: CETIRIZINE HYDROCHLORIDE
     Indication: Rheumatoid arthritis
     Dosage: 10 MG
     Route: 065
  23. CETIRIZINE HYDROCHLORIDE [Suspect]
     Active Substance: CETIRIZINE HYDROCHLORIDE
     Dosage: 25 MG
     Route: 065
  24. CALCIUM CARBONATE [Suspect]
     Active Substance: CALCIUM CARBONATE
     Indication: Product used for unknown indication
     Dosage: UNK
     Route: 065
  25. CALCIUM CHLORIDE [Suspect]
     Active Substance: CALCIUM CHLORIDE
     Indication: Product used for unknown indication
     Dosage: UNK
     Route: 065
  26. CALCIUM GLUCONATE [Suspect]
     Active Substance: CALCIUM GLUCONATE
     Indication: Product used for unknown indication
     Dosage: UNK
     Route: 065
  27. CALCIUM LACTATE [Suspect]
     Active Substance: CALCIUM LACTATE
     Indication: Rheumatoid arthritis
     Route: 065
  28. CALCIUM LACTATE [Suspect]
     Active Substance: CALCIUM LACTATE
     Indication: Rheumatoid arthritis
     Route: 065
  29. CELEBREX [Suspect]
     Active Substance: CELECOXIB
     Indication: Product used for unknown indication
     Dosage: UNK (1 EVERY 1 DAYS)
     Route: 048
  30. CERTOLIZUMAB PEGOL [Suspect]
     Active Substance: CERTOLIZUMAB PEGOL
     Indication: Product used for unknown indication
     Dosage: UNK
     Route: 065
  31. CIMZIA [Suspect]
     Active Substance: CERTOLIZUMAB PEGOL
     Indication: Rheumatoid arthritis
     Dosage: 400 MG
     Route: 065
  32. CIMZIA [Suspect]
     Active Substance: CERTOLIZUMAB PEGOL
     Indication: Psoriasis
  33. CORTISONE [Suspect]
     Active Substance: CORTISONE
     Indication: Rheumatoid arthritis
     Dosage: UNK
     Route: 058
  34. CORTISONE ACETATE [Suspect]
     Active Substance: CORTISONE ACETATE
     Indication: Rheumatoid arthritis
     Dosage: 25 MG
     Route: 065
  35. CORTISONE ACETATE [Suspect]
     Active Substance: CORTISONE ACETATE
     Dosage: UNK
     Route: 065
  36. COSENTYX [Suspect]
     Active Substance: SECUKINUMAB
     Indication: Psoriatic arthropathy
     Dosage: UNK (INJECTION NOT OTHERWISE SPECIFIED)
     Route: 065
  37. COSENTYX [Suspect]
     Active Substance: SECUKINUMAB
     Indication: Product used for unknown indication
  38. DICLOFENAC POTASSIUM [Suspect]
     Active Substance: DICLOFENAC POTASSIUM
     Dosage: 2 G,1 G (1 EVERY .5 DAYS)
     Route: 048
  39. DICLOFENAC POTASSIUM [Suspect]
     Active Substance: DICLOFENAC POTASSIUM
     Indication: Product used for unknown indication
     Dosage: 20 G, QD
     Route: 048
  40. DICLOFENAC POTASSIUM [Suspect]
     Active Substance: DICLOFENAC POTASSIUM
     Dosage: 25 G, QW
     Route: 013
  41. DICLOFENAC POTASSIUM [Suspect]
     Active Substance: DICLOFENAC POTASSIUM
     Dosage: 25 G, QW
     Route: 048
  42. DICLOFENAC POTASSIUM [Suspect]
     Active Substance: DICLOFENAC POTASSIUM
     Dosage: 25 G, QW
     Route: 058
  43. DICLOFENAC POTASSIUM [Suspect]
     Active Substance: DICLOFENAC POTASSIUM
     Dosage: 25 G, (1 EVERY .5 WEEKS)
     Route: 048
  44. DICLOFENAC POTASSIUM [Suspect]
     Active Substance: DICLOFENAC POTASSIUM
     Dosage: UNK
     Route: 065
  45. DICLOFENAC SODIUM [Suspect]
     Active Substance: DICLOFENAC\DICLOFENAC SODIUM
     Dosage: 10 MG
     Route: 048
  46. DICLOFENAC SODIUM [Suspect]
     Active Substance: DICLOFENAC\DICLOFENAC SODIUM
     Dosage: 25 MG
     Route: 048
  47. DICLOFENAC SODIUM [Suspect]
     Active Substance: DICLOFENAC\DICLOFENAC SODIUM
     Dosage: 50 MG
     Route: 065
  48. DICLOFENAC SODIUM [Suspect]
     Active Substance: DICLOFENAC\DICLOFENAC SODIUM
     Indication: Product used for unknown indication
     Dosage: UNK
     Route: 065
  49. DESOXIMETASONE [Suspect]
     Active Substance: DESOXIMETASONE
     Indication: Rheumatoid arthritis
     Dosage: 25 MG
     Route: 065
  50. DESOXIMETASONE [Suspect]
     Active Substance: DESOXIMETASONE
     Dosage: UNK
     Route: 065
  51. DESOXIMETASONE [Suspect]
     Active Substance: DESOXIMETASONE
     Dosage: UNK
     Route: 065
  52. DESOXIMETASONE [Suspect]
     Active Substance: DESOXIMETASONE
     Dosage: UNK
     Route: 065
  53. DICLOFENAC DIETHYLAMINE [Suspect]
     Active Substance: DICLOFENAC DIETHYLAMINE
     Indication: Product used for unknown indication
     Dosage: UNK
     Route: 065
  54. DICLOFENAC DIETHYLAMINE [Suspect]
     Active Substance: DICLOFENAC DIETHYLAMINE
     Indication: Rheumatoid arthritis
  55. DOXYCYCLINE [Suspect]
     Active Substance: DOXYCYCLINE
     Indication: Product used for unknown indication
     Dosage: 40 MG
     Route: 065
  56. ERELZI [Suspect]
     Active Substance: ETANERCEPT-SZZS
     Indication: Rheumatoid arthritis
     Dosage: UNK
     Route: 065
  57. ERELZI [Suspect]
     Active Substance: ETANERCEPT-SZZS
     Indication: Product used for unknown indication
  58. ENBREL [Suspect]
     Active Substance: ETANERCEPT
     Indication: Rheumatoid arthritis
     Dosage: 50 MG  (1 EVERY 1 WEEKS
     Route: 058
  59. ENBREL [Suspect]
     Active Substance: ETANERCEPT
     Dosage: 50 MG  (1 EVERY 1 WEEKS
     Route: 058
  60. FOLIC ACID [Suspect]
     Active Substance: FOLIC ACID
     Dosage: 0.5 MG
     Route: 065
  61. FOLIC ACID [Suspect]
     Active Substance: FOLIC ACID
     Dosage: 1 MG
     Route: 065
  62. FOLIC ACID [Suspect]
     Active Substance: FOLIC ACID
     Dosage: 25 MG
     Route: 065
  63. FOLIC ACID [Suspect]
     Active Substance: FOLIC ACID
     Indication: Rheumatoid arthritis
     Dosage: 3 MG
     Route: 065
  64. FOLIC ACID [Suspect]
     Active Substance: FOLIC ACID
     Dosage: 5 MG
     Route: 065
  65. FOLIC ACID [Suspect]
     Active Substance: FOLIC ACID
     Dosage: 500 MG
     Route: 065
  66. FOLIC ACID [Suspect]
     Active Substance: FOLIC ACID
     Dosage: UNK MG
     Route: 065
  67. FLUMETHASONE PIVALATE [Suspect]
     Active Substance: FLUMETHASONE PIVALATE
     Indication: Rheumatoid arthritis
     Dosage: UNK
     Route: 058
  68. FOSAMAX [Suspect]
     Active Substance: ALENDRONATE SODIUM
     Indication: Rheumatoid arthritis
     Dosage: UNK
     Route: 065
  69. GOLIMUMAB [Suspect]
     Active Substance: GOLIMUMAB
     Indication: Product used for unknown indication
     Dosage: UNK
     Route: 065
  70. HUMIRA [Suspect]
     Active Substance: ADALIMUMAB
     Indication: Rheumatoid arthritis
     Dosage: 40 MG
     Route: 058
  71. HYDROCORTISONE [Suspect]
     Active Substance: HYDROCORTISONE
     Indication: Rheumatoid arthritis
     Dosage: UNK
     Route: 065
  72. HYDROXYCHLOROQUINE [Suspect]
     Active Substance: HYDROXYCHLOROQUINE
     Dosage: 400 MG  (1 EVERY 1 DAYS)
     Route: 048
  73. HYDROXYCHLOROQUINE [Suspect]
     Active Substance: HYDROXYCHLOROQUINE
     Dosage: 400 MG  (1 EVERY 1 DAYS)
     Route: 066
  74. HYDROXYCHLOROQUINE [Suspect]
     Active Substance: HYDROXYCHLOROQUINE
     Dosage: 400 MG  (1 EVERY 1 DAYS)
     Route: 048
  75. HYDROXYCHLOROQUINE [Suspect]
     Active Substance: HYDROXYCHLOROQUINE
     Indication: Rheumatoid arthritis
     Dosage: 400 MG  (1 EVERY 1 DAYS)
     Route: 065
  76. HYDROXYCHLOROQUINE SULFATE [Suspect]
     Active Substance: HYDROXYCHLOROQUINE SULFATE
     Indication: Rheumatoid arthritis
     Dosage: 400 MG, QD
     Route: 048
  77. HYDROXYCHLOROQUINE SULFATE [Suspect]
     Active Substance: HYDROXYCHLOROQUINE SULFATE
     Dosage: 400 MG, QD
     Route: 066
  78. INFLIXIMAB [Suspect]
     Active Substance: INFLIXIMAB
     Dosage: 400 MG
     Route: 065
  79. INFLIXIMAB [Suspect]
     Active Substance: INFLIXIMAB
     Indication: Product used for unknown indication
     Route: 065
  80. ISOPROPYL ALCOHOL [Suspect]
     Active Substance: ISOPROPYL ALCOHOL
     Indication: Product used for unknown indication
     Dosage: UNK
     Route: 065
  81. KEVZARA [Suspect]
     Active Substance: SARILUMAB
     Indication: Rheumatoid arthritis
     Dosage: UNK
     Route: 065
  82. LEFLUNOMIDE [Suspect]
     Active Substance: LEFLUNOMIDE
     Indication: Rheumatoid arthritis
     Dosage: 20 MG, QD
     Route: 065
  83. LEFLUNOMIDE [Suspect]
     Active Substance: LEFLUNOMIDE
     Indication: Product used for unknown indication
     Dosage: UNK
     Route: 043
  84. LEFLUNOMIDE [Suspect]
     Active Substance: LEFLUNOMIDE
     Dosage: UNK
     Route: 065
  85. LEFLUNOMIDE [Suspect]
     Active Substance: LEFLUNOMIDE
     Dosage: UNK
     Route: 065
  86. LYRICA [Suspect]
     Active Substance: PREGABALIN
     Indication: Product used for unknown indication
     Dosage: UNK
     Route: 065
  87. METHOTREXATE [Suspect]
     Active Substance: METHOTREXATE
     Dosage: 10 MG (SYRUP)
     Route: 048
  88. METHOTREXATE [Suspect]
     Active Substance: METHOTREXATE
     Dosage: 15 MG, QD
     Route: 048
  89. METHOTREXATE [Suspect]
     Active Substance: METHOTREXATE
     Dosage: 20 MG, QD
     Route: 048
  90. METHOTREXATE [Suspect]
     Active Substance: METHOTREXATE
     Dosage: 20 MG, QD
     Route: 048
  91. METHOTREXATE [Suspect]
     Active Substance: METHOTREXATE
     Dosage: 20 MG, QD
     Route: 048
  92. METHOTREXATE [Suspect]
     Active Substance: METHOTREXATE
     Dosage: 20 MG, QD
     Route: 048
  93. METHOTREXATE [Suspect]
     Active Substance: METHOTREXATE
     Dosage: 25 MG, QD
     Route: 048
  94. METHOTREXATE [Suspect]
     Active Substance: METHOTREXATE
     Indication: Rheumatoid arthritis
     Dosage: 25 MG, QD
     Route: 058
  95. METHOTREXATE [Suspect]
     Active Substance: METHOTREXATE
     Dosage: 25 MG (SYRUP)
     Route: 048
  96. METHOTREXATE [Suspect]
     Active Substance: METHOTREXATE
     Dosage: UNK
     Route: 048
  97. METHOTREXATE SODIUM [Suspect]
     Active Substance: METHOTREXATE SODIUM
     Indication: Product used for unknown indication
     Dosage: 2 MG, QD (1 MG, 2 EVERY 1 DAYS)
     Route: 048
  98. MYCOPHENOLATE MOFETIL [Suspect]
     Active Substance: MYCOPHENOLATE MOFETIL
     Indication: Product used for unknown indication
     Route: 065
  99. NAPROXEN [Suspect]
     Active Substance: NAPROXEN
     Indication: Product used for unknown indication
     Dosage: 500 MG
     Route: 065
  100. NAPROXEN SODIUM [Suspect]
     Active Substance: NAPROXEN\NAPROXEN SODIUM
     Indication: Product used for unknown indication
     Dosage: 500 MG
     Route: 065
  101. ORENCIA [Suspect]
     Active Substance: ABATACEPT
     Route: 041
  102. ORENCIA [Suspect]
     Active Substance: ABATACEPT
     Route: 042
  103. ORENCIA [Suspect]
     Active Substance: ABATACEPT
     Indication: Rheumatoid arthritis
     Route: 058
  104. OTEZLA [Suspect]
     Active Substance: APREMILAST
     Indication: Rheumatoid arthritis
     Dosage: 3 MG
     Route: 048
  105. PHTHALYLSULFATHIAZOLE [Suspect]
     Active Substance: PHTHALYLSULFATHIAZOLE
     Indication: Rheumatoid arthritis
     Dosage: UNK
     Route: 065
  106. PREDNISONE [Suspect]
     Active Substance: PREDNISONE
     Indication: Rheumatoid arthritis
     Dosage: 40 MG
     Route: 048
  107. PREDNISONE [Suspect]
     Active Substance: PREDNISONE
     Indication: Condition aggravated
     Dosage: 5 MG
     Route: 048
  108. PSEUDOEPHEDRINE HYDROCHLORIDE [Suspect]
     Active Substance: PSEUDOEPHEDRINE HYDROCHLORIDE
     Indication: Rheumatoid arthritis
     Dosage: UNK
     Route: 065
  109. RITUXIMAB [Suspect]
     Active Substance: RITUXIMAB
     Dosage: UNK
     Route: 058
  110. RITUXIMAB [Suspect]
     Active Substance: RITUXIMAB
     Indication: Rheumatoid arthritis
     Dosage: UNK
     Route: 065
  111. CETIRIZINE HYDROCHLORIDE\PSEUDOEPHEDRINE HYDROCHLORIDE [Suspect]
     Active Substance: CETIRIZINE HYDROCHLORIDE\PSEUDOEPHEDRINE HYDROCHLORIDE
     Indication: Rheumatoid arthritis
     Dosage: 10 MG, QD
     Route: 048
  112. CETIRIZINE HYDROCHLORIDE\PSEUDOEPHEDRINE HYDROCHLORIDE [Suspect]
     Active Substance: CETIRIZINE HYDROCHLORIDE\PSEUDOEPHEDRINE HYDROCHLORIDE
     Dosage: UNK
     Route: 065
  113. REMICADE [Suspect]
     Active Substance: INFLIXIMAB
     Indication: Rheumatoid arthritis
     Dosage: UNK  (POWDER FOR SOLUTION INTRAVENOUS)
     Route: 042
  114. SIMPONI [Suspect]
     Active Substance: GOLIMUMAB
     Indication: Rheumatoid arthritis
     Dosage: 50 MG  (1 EVERY 1 MONTH)
     Route: 058
  115. SIMPONI [Suspect]
     Active Substance: GOLIMUMAB
     Dosage: UNK
     Route: 042
  116. STELARA [Suspect]
     Active Substance: USTEKINUMAB
     Dosage: 45 MG
     Route: 042
  117. STELARA [Suspect]
     Active Substance: USTEKINUMAB
     Dosage: 45 MG
     Route: 058
  118. STELARA [Suspect]
     Active Substance: USTEKINUMAB
     Indication: Rheumatoid arthritis
     Dosage: UNK
     Route: 065
  119. SULFASALAZINE [Suspect]
     Active Substance: SULFASALAZINE
     Dosage: 1G Q12H
     Route: 065
  120. SULFASALAZINE [Suspect]
     Active Substance: SULFASALAZINE
     Dosage: 1 MG, QD
     Route: 048
  121. SULFASALAZINE [Suspect]
     Active Substance: SULFASALAZINE
     Indication: Rheumatoid arthritis
     Dosage: 1 MG
     Route: 048
  122. SULFASALAZINE [Suspect]
     Active Substance: SULFASALAZINE
     Dosage: 1000 MG, QD
     Route: 048
  123. SULFASALAZINE [Suspect]
     Active Substance: SULFASALAZINE
     Dosage: 500 MG
     Route: 048
  124. SULFASALAZINE [Suspect]
     Active Substance: SULFASALAZINE
     Dosage: 500 MG, Q12H
     Route: 065
  125. TOCILIZUMAB [Suspect]
     Active Substance: TOCILIZUMAB
     Dosage: UNK
     Route: 059
  126. TOCILIZUMAB [Suspect]
     Active Substance: TOCILIZUMAB
     Indication: Product used for unknown indication
     Dosage: UNK
     Route: 065
  127. TOFACITINIB CITRATE [Suspect]
     Active Substance: TOFACITINIB CITRATE
     Dosage: 5 MG QD
     Route: 048
  128. TOFACITINIB CITRATE [Suspect]
     Active Substance: TOFACITINIB CITRATE
     Indication: Psoriatic arthropathy
     Dosage: 5 MG QD
     Route: 065
  129. TOFACITINIB CITRATE [Suspect]
     Active Substance: TOFACITINIB CITRATE
     Dosage: 5 MG QD
     Route: 065
  130. TOFACITINIB CITRATE [Suspect]
     Active Substance: TOFACITINIB CITRATE
     Indication: Rheumatoid arthritis
     Dosage: 5 MG (1 EVERY 1 WEEK)
     Route: 048
  131. VITAMIN C [Suspect]
     Active Substance: ASCORBIC ACID
     Indication: Product used for unknown indication
     Dosage: UNK
     Route: 065
  132. PREDNISONE [Suspect]
     Active Substance: PREDNISONE
     Dosage: 5 MG
     Route: 048
  133. PREDNISONE [Suspect]
     Active Substance: PREDNISONE
     Indication: Rheumatoid arthritis
     Dosage: 5 MG
     Route: 065
  134. PREDNISONE [Suspect]
     Active Substance: PREDNISONE
     Dosage: 5 MG
     Route: 065
  135. PREDNISONE [Suspect]
     Active Substance: PREDNISONE
     Dosage: UNK
     Route: 065
  136. XELJANZ [Suspect]
     Active Substance: TOFACITINIB CITRATE
     Dosage: 5 MG
     Route: 048
  137. XELJANZ [Suspect]
     Active Substance: TOFACITINIB CITRATE
     Dosage: 5 MG
     Route: 048
  138. XELJANZ [Suspect]
     Active Substance: TOFACITINIB CITRATE
     Indication: Rheumatoid arthritis
     Dosage: 5 MG
     Route: 065
  139. XELJANZ [Suspect]
     Active Substance: TOFACITINIB CITRATE
     Dosage: 5 MG
     Route: 065
  140. ATIVAN [Concomitant]
     Active Substance: LORAZEPAM
     Indication: Product used for unknown indication
     Dosage: UNK
     Route: 065
  141. CAFFEINE [Concomitant]
     Active Substance: CAFFEINE
     Indication: Product used for unknown indication
     Dosage: UNK
     Route: 065
  142. CALCIUM [Concomitant]
     Active Substance: CALCIUM
     Indication: Product used for unknown indication
     Dosage: UNK
     Route: 065
  143. CALCIUM GLUBIONATE [Concomitant]
     Active Substance: CALCIUM GLUBIONATE
     Indication: Product used for unknown indication
     Dosage: UNK
     Route: 065
  144. CHOLECALCIFEROL [Concomitant]
     Active Substance: CHOLECALCIFEROL
     Indication: Product used for unknown indication
     Dosage: UNK
     Route: 065
  145. CYANOCOBALAMIN [Concomitant]
     Active Substance: CYANOCOBALAMIN
     Indication: Product used for unknown indication
     Dosage: UNK
     Route: 065
  146. ELBASVIR [Concomitant]
     Active Substance: ELBASVIR
     Indication: Product used for unknown indication
     Dosage: UNK
     Route: 065
  147. ERGOCALCIFEROL [Concomitant]
     Active Substance: ERGOCALCIFEROL
     Indication: Product used for unknown indication
     Dosage: UNK
     Route: 065
  148. GLUCOSAMINE [Concomitant]
     Active Substance: GLUCOSAMINE
     Indication: Product used for unknown indication
     Dosage: UNK
     Route: 065
  149. IBUPROFEN [Concomitant]
     Active Substance: IBUPROFEN
     Indication: Product used for unknown indication
     Dosage: UNK
     Route: 065
  150. LANSOPRAZOLE [Concomitant]
     Active Substance: LANSOPRAZOLE
     Indication: Product used for unknown indication
     Dosage: UNK
     Route: 065
  151. LEVOTHYROXINE SODIUM [Concomitant]
     Active Substance: LEVOTHYROXINE SODIUM
     Indication: Product used for unknown indication
     Dosage: UNK
     Route: 065
  152. LISINOPRIL [Concomitant]
     Active Substance: LISINOPRIL
     Indication: Product used for unknown indication
     Dosage: UNK
     Route: 065
  153. LORAZEPAM [Concomitant]
     Active Substance: LORAZEPAM
     Indication: Anxiety
     Dosage: UNK
     Route: 065
  154. MAGNESIUM [Concomitant]
     Active Substance: MAGNESIUM
     Indication: Product used for unknown indication
     Dosage: UNK
     Route: 065
  155. MELOXICAM [Concomitant]
     Active Substance: MELOXICAM
     Indication: Product used for unknown indication
     Dosage: UNK
     Route: 065
  156. PANTOPRAZOLE [Concomitant]
     Active Substance: PANTOPRAZOLE
     Indication: Product used for unknown indication
     Route: 065
  157. PANTOPRAZOLE SODIUM ANHYDROUS [Concomitant]
     Active Substance: PANTOPRAZOLE SODIUM ANHYDROUS
     Indication: Product used for unknown indication
     Dosage: UNK
     Route: 065
  158. PIROXICAM [Concomitant]
     Active Substance: PIROXICAM
     Indication: Product used for unknown indication
     Dosage: UNK
     Route: 065
  159. PREDNISOLONE [Concomitant]
     Active Substance: PREDNISOLONE
     Indication: Product used for unknown indication
     Dosage: UNK
     Route: 065
  160. QUETIAPINE [Concomitant]
     Active Substance: QUETIAPINE
     Indication: Product used for unknown indication
     Dosage: UNNK
     Route: 065
  161. QUETIAPINE FUMARATE [Concomitant]
     Active Substance: QUETIAPINE FUMARATE
     Indication: Product used for unknown indication
     Dosage: UNK
     Route: 065
  162. RAMIPRIL [Concomitant]
     Active Substance: RAMIPRIL
     Indication: Product used for unknown indication
     Dosage: UNK
     Route: 065
  163. RISEDRONATE SODIUM [Concomitant]
     Active Substance: RISEDRONATE SODIUM
     Indication: Product used for unknown indication
     Dosage: UNK
     Route: 065
  164. SULFASALAZINE [Concomitant]
     Active Substance: SULFASALAZINE
     Indication: Product used for unknown indication
     Dosage: UNK
     Route: 065
  165. VITAMIN D3 [Concomitant]
     Active Substance: CHOLECALCIFEROL
     Indication: Product used for unknown indication
     Dosage: UNK
     Route: 065

REACTIONS (54)
  - Swollen joint count increased [Fatal]
  - Taste disorder [Fatal]
  - Psoriatic arthropathy [Fatal]
  - Stomatitis [Fatal]
  - Memory impairment [Fatal]
  - Weight increased [Fatal]
  - Weight decreased [Fatal]
  - Urticaria [Fatal]
  - Prescribed overdose [Fatal]
  - Off label use [Fatal]
  - Product use in unapproved indication [Fatal]
  - Product quality issue [Fatal]
  - Contraindicated product administered [Fatal]
  - Therapeutic product effect decreased [Fatal]
  - Treatment failure [Fatal]
  - Drug ineffective [Fatal]
  - Irritable bowel syndrome [Not Recovered/Not Resolved]
  - Lupus vulgaris [Not Recovered/Not Resolved]
  - Ulcer haemorrhage [Not Recovered/Not Resolved]
  - Muscle injury [Not Recovered/Not Resolved]
  - Nasopharyngitis [Not Recovered/Not Resolved]
  - Liver disorder [Not Recovered/Not Resolved]
  - Drug hypersensitivity [Not Recovered/Not Resolved]
  - Lower respiratory tract infection [Not Recovered/Not Resolved]
  - Pruritus [Not Recovered/Not Resolved]
  - Nausea [Not Recovered/Not Resolved]
  - Therapy non-responder [Not Recovered/Not Resolved]
  - Product use issue [Not Recovered/Not Resolved]
  - Therapeutic response decreased [Not Recovered/Not Resolved]
  - Wheezing [Not Recovered/Not Resolved]
  - Wound [Not Recovered/Not Resolved]
  - Fatigue [Not Recovered/Not Resolved]
  - Diarrhoea [Not Recovered/Not Resolved]
  - Vomiting [Not Recovered/Not Resolved]
  - Abdominal pain [Not Recovered/Not Resolved]
  - Anti-cyclic citrullinated peptide antibody [Not Recovered/Not Resolved]
  - Chest pain [Not Recovered/Not Resolved]
  - Confusional state [Not Recovered/Not Resolved]
  - Dizziness [Not Recovered/Not Resolved]
  - Dyspnoea [Not Recovered/Not Resolved]
  - Eye injury [Not Recovered/Not Resolved]
  - Folliculitis [Not Recovered/Not Resolved]
  - Gastrointestinal disorder [Not Recovered/Not Resolved]
  - Ill-defined disorder [Not Recovered/Not Resolved]
  - Impaired healing [Not Recovered/Not Resolved]
  - Infection [Not Recovered/Not Resolved]
  - Intentional product use issue [Not Recovered/Not Resolved]
  - Systemic lupus erythematosus [Not Recovered/Not Resolved]
  - Mobility decreased [Not Recovered/Not Resolved]
  - Malaise [Not Recovered/Not Resolved]
  - Hypoaesthesia [Not Recovered/Not Resolved]
  - Sciatica [Not Recovered/Not Resolved]
  - Sinusitis [Not Recovered/Not Resolved]
  - Decreased appetite [Not Recovered/Not Resolved]
